FAERS Safety Report 10381211 (Version 1)
Quarter: 2014Q1

REPORT INFORMATION
  Report Type: Spontaneous
  Country: US (occurrence: None)
  Receive Date: 20140306
  Receipt Date: 20140306
  Transmission Date: 20141002
  Serious: Yes (Hospitalization)
  Sender: FDA-Public Use
  Company Number: 163-21880-13030442

PATIENT
  Age: 86 Year
  Sex: Male

DRUGS (4)
  1. REVLIMID (LENALIDOMIDE) [Suspect]
     Indication: PLASMA CELL MYELOMA
     Dosage: 21 IN 21D
     Route: 048
     Dates: start: 20100219
  2. AREDIA (PAMIDRONATE DISODIUM) [Concomitant]
  3. VITAMIN C (ASCORBIC ACID) [Concomitant]
  4. VITAMIN B12 (CYANOCOBALAMIN) [Concomitant]

REACTIONS (6)
  - Thrombosis [None]
  - Anaemia [None]
  - Asthenia [None]
  - Hypoaesthesia [None]
  - Paraesthesia [None]
  - Full blood count decreased [None]
